FAERS Safety Report 6348322-1 (Version None)
Quarter: 2009Q3

REPORT INFORMATION
  Report Type: 
  Country: None (occurrence: None)
  Receive Date: 20090908
  Receipt Date: 20090820
  Transmission Date: 20100115
  Serious: Yes (Death)
  Sender: FDA-Public Use
  Company Number: 2008AL004021

PATIENT
  Age: 66 Year
  Sex: Male

DRUGS (13)
  1. DIGOXIN [Suspect]
     Dosage: 0.125MG, DAILY, PO
     Route: 048
  2. LEVAQUIN [Concomitant]
  3. INSULIN [Concomitant]
  4. SYNTHROID [Concomitant]
  5. SODIUM BICARB [Concomitant]
  6. PROTONIX [Concomitant]
  7. MULTI-VITAMIN [Concomitant]
  8. FLAGYL [Concomitant]
  9. TOPROL-XL [Concomitant]
  10. RENEGEL [Concomitant]
  11. CARDIZEM [Concomitant]
  12. MEGACE [Concomitant]
  13. NEPHROCAPS [Concomitant]

REACTIONS (43)
  - ABDOMINAL DISCOMFORT [None]
  - ANAEMIA [None]
  - ANHEDONIA [None]
  - ANTICOAGULATION DRUG LEVEL ABOVE THERAPEUTIC [None]
  - ANXIETY [None]
  - ARTERIOVENOUS GRAFT SITE INFECTION [None]
  - ASTHENIA [None]
  - ATRIAL FIBRILLATION [None]
  - BLOOD GLUCOSE INCREASED [None]
  - BLOOD PRESSURE INCREASED [None]
  - BRADYCARDIA [None]
  - CARDIO-RESPIRATORY ARREST [None]
  - CONFUSIONAL STATE [None]
  - CONGESTIVE CARDIOMYOPATHY [None]
  - DEPRESSED LEVEL OF CONSCIOUSNESS [None]
  - DIALYSIS [None]
  - DYSPNOEA [None]
  - ECONOMIC PROBLEM [None]
  - EMOTIONAL DISORDER [None]
  - ERYTHEMA [None]
  - EXPOSURE TO TOXIC AGENT [None]
  - FEAR [None]
  - GENERALISED OEDEMA [None]
  - HYPOTENSION [None]
  - HYPOTHERMIA [None]
  - ILL-DEFINED DISORDER [None]
  - LOBAR PNEUMONIA [None]
  - MENTAL DISORDER [None]
  - MULTIPLE INJURIES [None]
  - OEDEMA PERIPHERAL [None]
  - OSTEODYSTROPHY [None]
  - PAIN [None]
  - PAIN IN EXTREMITY [None]
  - PROCTALGIA [None]
  - PULMONARY OEDEMA [None]
  - PYREXIA [None]
  - RENAL FAILURE CHRONIC [None]
  - SEPSIS [None]
  - SUPERIOR VENA CAVAL STENOSIS [None]
  - SUPRAVENTRICULAR EXTRASYSTOLES [None]
  - TACHYCARDIA [None]
  - TUBERCULIN TEST POSITIVE [None]
  - WOUND [None]
